FAERS Safety Report 25902443 (Version 1)
Quarter: 2025Q4

REPORT INFORMATION
  Report Type: Spontaneous
  Country: US (occurrence: US)
  Receive Date: 20251009
  Receipt Date: 20251009
  Transmission Date: 20260117
  Serious: No
  Sender: SANOFI AVENTIS
  Company Number: US-SA-2025SA300193

PATIENT
  Sex: Female

DRUGS (1)
  1. DUPIXENT [Suspect]
     Active Substance: DUPILUMAB
     Indication: Nasal polyps
     Dosage: 300 MG, QOW
     Route: 058
     Dates: start: 20231204

REACTIONS (4)
  - Nasal obstruction [Recovered/Resolved]
  - Rhinorrhoea [Recovered/Resolved]
  - Rebound effect [Recovered/Resolved]
  - Product dose omission issue [Unknown]
